FAERS Safety Report 5807454-4 (Version None)
Quarter: 2008Q3

REPORT INFORMATION
  Report Type: 
  Country: None (occurrence: None)
  Receive Date: 20080711
  Receipt Date: 20080702
  Transmission Date: 20090109
  Serious: No
  Sender: FDA-Public Use
  Company Number: US-MERCK-0804USA01696

PATIENT
  Age: 42 Year
  Sex: Female
  Weight: 82 kg

DRUGS (3)
  1. SINGULAIR [Suspect]
     Indication: ASTHMA
     Route: 048
  2. SINGULAIR [Suspect]
     Route: 048
     Dates: start: 20080201, end: 20080301
  3. ALBUTEROL [Concomitant]
     Indication: ASTHMA

REACTIONS (2)
  - DEPRESSION [None]
  - MOOD SWINGS [None]
